FAERS Safety Report 16692894 (Version 1)
Quarter: 2019Q4

REPORT INFORMATION
  Report Type: Spontaneous
  Country: US (occurrence: US)
  Receive Date: 20190809
  Receipt Date: 20190809
  Transmission Date: 20200122
  Serious: No
  Sender: FDA-Public Use
  Company Number: None

PATIENT
  Age: 42 Year
  Sex: Female
  Weight: 85.5 kg

DRUGS (4)
  1. EUCRISA [Suspect]
     Active Substance: CRISABOROLE
     Indication: PERIORAL DERMATITIS
     Dosage: ?          QUANTITY:1 GRAM;?          THERAPY ONGOING: Y
     Route: 061
     Dates: start: 20190702, end: 20190809
  2. CLARITINE [Concomitant]
     Active Substance: LORATADINE
  3. QUINTIAPINE [Concomitant]
  4. LITIUM [Concomitant]

REACTIONS (1)
  - Administration site pain [None]

NARRATIVE: CASE EVENT DATE: 20190722
